FAERS Safety Report 7928555-0 (Version None)
Quarter: 2011Q4

REPORT INFORMATION
  Report Type: 
  Country: None (occurrence: None)
  Receive Date: 20111118
  Receipt Date: 20111107
  Transmission Date: 20120403
  Serious: Yes (Other)
  Sender: FDA-Public Use
  Company Number: GB-BRISTOL-MYERS SQUIBB COMPANY-16237992

PATIENT
  Age: 14 Year
  Sex: Female

DRUGS (3)
  1. DACTINOMYCIN [Suspect]
     Indication: EWING'S SARCOMA
     Dosage: SOLUTION FOR INF
     Route: 042
  2. IFOSFAMIDE [Suspect]
     Indication: EWING'S SARCOMA
     Dosage: SOLUTION FOR INF
     Route: 042
  3. VINCRISTINE [Suspect]
     Indication: EWING'S SARCOMA
     Dosage: SOLUTION FOR INF
     Route: 042

REACTIONS (5)
  - NEPHROPATHY [None]
  - RENAL TUBULAR DISORDER [None]
  - HAEMODIALYSIS [None]
  - BONE METABOLISM DISORDER [None]
  - PATHOLOGICAL FRACTURE [None]
